FAERS Safety Report 7236965-2 (Version None)
Quarter: 2011Q1

REPORT INFORMATION
  Report Type: 
  Country: None (occurrence: None)
  Receive Date: 20110121
  Receipt Date: 20110112
  Transmission Date: 20110831
  Serious: Yes (Other)
  Sender: FDA-Public Use
  Company Number: FR-BIOGENIDEC-2010BI025585

PATIENT
  Age: 45 Year
  Sex: Female

DRUGS (2)
  1. ARTISIAL [Concomitant]
     Indication: DRY MOUTH
  2. AVONEX [Suspect]
     Indication: MULTIPLE SCLEROSIS
     Route: 030
     Dates: start: 20070601

REACTIONS (1)
  - SJOGREN'S SYNDROME [None]
